FAERS Safety Report 5207171-8 (Version None)
Quarter: 2007Q1

REPORT INFORMATION
  Report Type: 
  Country: None (occurrence: None)
  Receive Date: 20070112
  Receipt Date: 20070103
  Transmission Date: 20070707
  Serious: Yes (Hospitalization, Other)
  Sender: FDA-Public Use
  Company Number: US-AVENTIS-200617541US

PATIENT
  Sex: Female
  Weight: 112 kg

DRUGS (5)
  1. ARAVA [Suspect]
     Indication: RHEUMATOID ARTHRITIS
     Dates: start: 20040101, end: 20060118
  2. HUMIRA [Concomitant]
     Dosage: DOSE: EVERY OTHER WEEK
     Route: 058
     Dates: start: 20040101, end: 20060504
  3. NAPROXEN [Concomitant]
     Dosage: DOSE: UNK
     Route: 048
     Dates: start: 20050112, end: 20050606
  4. ATENOLOL [Concomitant]
     Dosage: DOSE: UNK
  5. LEVOTHYROXINE SODIUM [Concomitant]

REACTIONS (12)
  - ABDOMINAL DISTENSION [None]
  - ABDOMINAL PAIN [None]
  - ALANINE AMINOTRANSFERASE INCREASED [None]
  - ASPARTATE AMINOTRANSFERASE INCREASED [None]
  - BLOOD ALKALINE PHOSPHATASE INCREASED [None]
  - BLOOD GLUCOSE INCREASED [None]
  - CHOLECYSTITIS [None]
  - CHOLELITHIASIS [None]
  - DYSGEUSIA [None]
  - HEPATIC ENZYME INCREASED [None]
  - LIVER FUNCTION TEST ABNORMAL [None]
  - RHEUMATOID ARTHRITIS [None]
